FAERS Safety Report 7245507-7 (Version None)
Quarter: 2011Q1

REPORT INFORMATION
  Report Type: 
  Country: None (occurrence: None)
  Receive Date: 20110126
  Receipt Date: 20110124
  Transmission Date: 20110831
  Serious: Yes (Hospitalization)
  Sender: FDA-Public Use
  Company Number: BR-ABBOTT-11P-020-0700272-00

PATIENT
  Sex: Female
  Weight: 48 kg

DRUGS (5)
  1. LASIX [Concomitant]
     Indication: DIURETIC THERAPY
     Route: 048
     Dates: start: 20101001
  2. HUMIRA [Suspect]
     Indication: RHEUMATOID ARTHRITIS
     Route: 058
     Dates: start: 20090701, end: 20101001
  3. DIGOXIN [Concomitant]
     Indication: ARTHRALGIA
     Dosage: 1/2-CAPSULE PER DAY
     Route: 048
     Dates: start: 20101001
  4. PREDNISONE [Concomitant]
     Indication: RHEUMATOID ARTHRITIS
     Route: 048
     Dates: start: 20080101
  5. NIMESULIDE [Concomitant]
     Indication: ARTHRALGIA
     Route: 048
     Dates: start: 20060101

REACTIONS (4)
  - PULMONARY OEDEMA [None]
  - RESPIRATORY FAILURE [None]
  - ASTHENIA [None]
  - DEPRESSION [None]
